FAERS Safety Report 15100170 (Version 3)
Quarter: 2018Q3

REPORT INFORMATION
  Report Type: Report from Study
  Country: None (occurrence: TW)
  Receive Date: 20180703
  Receipt Date: 20180719
  Transmission Date: 20181010
  Serious: Yes (Hospitalization)
  Sender: FDA-Public Use
  Company Number: TW-ABBVIE-18K-153-2403698-00

PATIENT
  Age: 62 Year
  Sex: Male

DRUGS (2)
  1. HUMIRA [Suspect]
     Active Substance: ADALIMUMAB
     Indication: RHEUMATOID ARTHRITIS
     Route: 058
     Dates: start: 20120210
  2. HUMIRA [Suspect]
     Active Substance: ADALIMUMAB
     Indication: RHEUMATOID ARTHRITIS
     Route: 058
     Dates: end: 20180530

REACTIONS (8)
  - Joint swelling [Unknown]
  - Rash [Unknown]
  - Limb injury [Unknown]
  - Cellulitis [Unknown]
  - Extrapulmonary tuberculosis [Recovering/Resolving]
  - Cutaneous tuberculosis [Unknown]
  - Mycobacterial infection [Unknown]
  - Cellulitis [Unknown]

NARRATIVE: CASE EVENT DATE: 20180607
